FAERS Safety Report 20936403 (Version 1)
Quarter: 2022Q2

REPORT INFORMATION
  Report Type: Spontaneous
  Country: CN (occurrence: None)
  Receive Date: 20220609
  Receipt Date: 20220609
  Transmission Date: 20220721
  Serious: Yes (Other)
  Sender: FDA-Public Use
  Company Number: CN-ROCHE-3112257

PATIENT
  Sex: Female

DRUGS (13)
  1. MABTHERA [Suspect]
     Active Substance: RITUXIMAB
     Indication: Follicular lymphoma
     Dosage: ZR-GDP, R2, R-CHOP, BR
     Route: 065
  2. GAZYVA [Suspect]
     Active Substance: OBINUTUZUMAB
     Indication: Follicular lymphoma
     Dosage: GB
     Route: 042
  3. BENDAMUSTINE [Concomitant]
     Active Substance: BENDAMUSTINE
     Indication: Follicular lymphoma
     Dosage: BR, B
  4. CYCLOPHOSPHAMIDE [Concomitant]
     Active Substance: CYCLOPHOSPHAMIDE
     Indication: Follicular lymphoma
     Dosage: R-CHOP
  5. VINCRISTINE [Concomitant]
     Active Substance: VINCRISTINE
     Indication: Follicular lymphoma
     Dosage: R-CHOP
  6. DOXORUBICIN [Concomitant]
     Active Substance: DOXORUBICIN
     Indication: Follicular lymphoma
     Dosage: R-CHOP
  7. PREDNISOLONE [Concomitant]
     Active Substance: PREDNISOLONE
     Indication: Follicular lymphoma
     Dosage: R-CHOP
  8. GRANULOCYTE COLONY-STIMULATING FACTOR NOS [Concomitant]
     Active Substance: GRANULOCYTE COLONY-STIMULATING FACTOR NOS
     Indication: Product used for unknown indication
  9. LENALIDOMIDE [Concomitant]
     Active Substance: LENALIDOMIDE
     Indication: Follicular lymphoma
     Dosage: R2
  10. ZANUBRUTINIB [Concomitant]
     Active Substance: ZANUBRUTINIB
     Indication: Follicular lymphoma
     Dosage: ZR-GDP
  11. GEMCITABINE [Concomitant]
     Active Substance: GEMCITABINE
     Indication: Follicular lymphoma
     Dosage: ZR-GDP
  12. CISPLATIN [Concomitant]
     Active Substance: CISPLATIN
     Indication: Follicular lymphoma
     Dosage: ZR-GDP
  13. DEXAMETHASONE [Concomitant]
     Active Substance: DEXAMETHASONE
     Indication: Follicular lymphoma
     Dosage: ZR-GDP

REACTIONS (6)
  - Hypersensitivity [Unknown]
  - Agranulocytosis [Unknown]
  - Nausea [Unknown]
  - Vomiting [Unknown]
  - Febrile infection [Unknown]
  - Gastrointestinal disorder [Unknown]
